FAERS Safety Report 8201203-0 (Version None)
Quarter: 2012Q1

REPORT INFORMATION
  Report Type: 
  Country: None (occurrence: None)
  Receive Date: 20120307
  Receipt Date: 20120228
  Transmission Date: 20120608
  Serious: Yes (Other)
  Sender: FDA-Public Use
  Company Number: CIP-2012-00081

PATIENT

DRUGS (3)
  1. CARBOPLATIN [Suspect]
     Indication: NON-SMALL CELL LUNG CANCER
     Dosage: EVERY 21 DAYS
  2. CISPLATIN [Suspect]
     Indication: NON-SMALL CELL LUNG CANCER
     Dosage: EVERY 21 DAYS
  3. RH-ENDOSTATIN (ENDOSTATIN) [Suspect]
     Indication: NON-SMALL CELL LUNG CANCER
     Dosage: EVERY 21 DAYS

REACTIONS (1)
  - ARRHYTHMIA [None]
